FAERS Safety Report 16460751 (Version 1)
Quarter: 2019Q2

REPORT INFORMATION
  Report Type: Spontaneous
  Country: GB (occurrence: GB)
  Receive Date: 20190620
  Receipt Date: 20190620
  Transmission Date: 20190711
  Serious: Yes (Hospitalization)
  Sender: FDA-Public Use
  Company Number: GB-TEVA-2019-GB-1064896

PATIENT
  Age: 31 Year
  Sex: Female

DRUGS (9)
  1. WARFARIN [Suspect]
     Active Substance: WARFARIN
     Indication: DEEP VEIN THROMBOSIS
     Dosage: LOADING DOSE
     Route: 065
  2. HEPARIN [Concomitant]
     Active Substance: HEPARIN SODIUM
     Indication: DEEP VEIN THROMBOSIS
     Route: 050
  3. WARFARIN [Interacting]
     Active Substance: WARFARIN
     Dosage: LOADING DOSE; ON TWO OCCASIONS
     Route: 065
  4. ALTEPLASE. [Concomitant]
     Active Substance: ALTEPLASE
     Indication: THROMBOLYSIS
     Route: 065
  5. CISPLATIN. [Suspect]
     Active Substance: CISPLATIN
     Indication: LUNG ADENOCARCINOMA
     Route: 065
  6. VINORELBINE [Suspect]
     Active Substance: VINORELBINE\VINORELBINE TARTRATE
     Indication: LUNG ADENOCARCINOMA
     Route: 065
  7. DALTEPARIN-SODIUM [Interacting]
     Active Substance: DALTEPARIN SODIUM
     Indication: DEEP VEIN THROMBOSIS
     Dosage: 200 U/KG
     Route: 065
  8. FONDAPARINUX [Suspect]
     Active Substance: FONDAPARINUX
     Route: 065
  9. CRIZOTINIB [Suspect]
     Active Substance: CRIZOTINIB
     Indication: LUNG ADENOCARCINOMA
     Dosage: 9 CYCLES
     Route: 065

REACTIONS (4)
  - Drug interaction [Unknown]
  - Protein C decreased [Recovered/Resolved]
  - Protein S decreased [Recovered/Resolved]
  - Treatment failure [Unknown]
